FAERS Safety Report 5726156-6 (Version None)
Quarter: 2008Q2

REPORT INFORMATION
  Report Type: 
  Country: None (occurrence: None)
  Receive Date: 20080430
  Receipt Date: 20080418
  Transmission Date: 20081010
  Serious: Yes (Death)
  Sender: FDA-Public Use
  Company Number: S08-USA-00766-01

PATIENT
  Age: 77 Year
  Sex: Male

DRUGS (10)
  1. CELEXA [Suspect]
     Indication: DEPRESSION
     Dosage: 20 MG QD PO
     Route: 048
     Dates: start: 20070517, end: 20070522
  2. RIMONABANT (STUDY DRUG) [Suspect]
     Indication: DIABETES MELLITUS
     Dosage: 20 MG OD
     Dates: start: 20060601, end: 20070501
  3. RIMONABANT (STUDY DRUG) [Suspect]
     Indication: WEIGHT DECREASED
     Dosage: 20 MG OD
     Dates: start: 20060601, end: 20070501
  4. INSULIN [Concomitant]
  5. METFORMIN HCL [Concomitant]
  6. COUMADIN [Concomitant]
  7. LISINOPRIL [Concomitant]
  8. ISOSORBIDE DINITRATE [Concomitant]
  9. PRILOSEC [Concomitant]
  10. TERAZOSIN HCL [Concomitant]

REACTIONS (9)
  - ABNORMAL BEHAVIOUR [None]
  - APATHY [None]
  - BENIGN NEOPLASM OF PROSTATE [None]
  - COMPLETED SUICIDE [None]
  - DECREASED APPETITE [None]
  - DEPRESSION [None]
  - GUN SHOT WOUND [None]
  - HEADACHE [None]
  - INSOMNIA [None]
